FAERS Safety Report 12517038 (Version 1)
Quarter: 2016Q2

REPORT INFORMATION
  Report Type: Spontaneous
  Country: US (occurrence: US)
  Receive Date: 20160630
  Receipt Date: 20160630
  Transmission Date: 20160815
  Serious: No
  Sender: FDA-Public Use
  Company Number: US-PFIZER INC-2016289401

PATIENT
  Age: 51 Year
  Sex: Male

DRUGS (1)
  1. XELJANZ [Suspect]
     Active Substance: TOFACITINIB CITRATE
     Dosage: 15 MG, DAILY, (10MG IN THE AM, 5 MG PM-PARTIAL RESPONSE TO BID)

REACTIONS (3)
  - Prescribed overdose [Unknown]
  - Incorrect dose administered [Unknown]
  - Drug effect incomplete [Unknown]
